FAERS Safety Report 11022824 (Version 2)
Quarter: 2015Q2

REPORT INFORMATION
  Report Type: Report from Study
  Country: DE (occurrence: DE)
  Receive Date: 20150413
  Receipt Date: 20150421
  Transmission Date: 20150821
  Serious: Yes (Hospitalization)
  Sender: FDA-Public Use
  Company Number: DE-CELGENE-DEU-2015040975

PATIENT
  Age: 77 Year
  Sex: Female
  Weight: 103 kg

DRUGS (1)
  1. ABRAXANE [Suspect]
     Active Substance: PACLITAXEL
     Indication: BREAST CANCER
     Dosage: 265 MILLIGRAM
     Route: 041
     Dates: start: 20150212, end: 20150326

REACTIONS (1)
  - Calculus ureteric [Recovered/Resolved]

NARRATIVE: CASE EVENT DATE: 20150327
